FAERS Safety Report 5454841-2 (Version None)
Quarter: 2007Q3

REPORT INFORMATION
  Report Type: 
  Country: None (occurrence: None)
  Receive Date: 20070917
  Receipt Date: 20061003
  Transmission Date: 20080115
  Serious: Yes (Other)
  Sender: FDA-Public Use
  Company Number: US-ASTRAZENECA-2006UW19234

PATIENT
  Age: 55 Year
  Sex: Female
  Weight: 59 kg

DRUGS (5)
  1. SEROQUEL [Suspect]
     Indication: INSOMNIA
     Route: 048
     Dates: start: 20060926, end: 20060928
  2. SEROQUEL [Suspect]
     Route: 048
     Dates: start: 20060929, end: 20060930
  3. INSULIN [Concomitant]
  4. LYRICA [Concomitant]
  5. OTHER MULTIPLE MEDICATIONS [Concomitant]

REACTIONS (4)
  - BLOOD GLUCOSE INCREASED [None]
  - ELECTRIC SHOCK [None]
  - INSOMNIA [None]
  - MUSCULOSKELETAL STIFFNESS [None]
